FAERS Safety Report 9502053 (Version 4)
Quarter: 2013Q4

REPORT INFORMATION
  Report Type: Spontaneous
  Country: US (occurrence: US)
  Receive Date: 20130905
  Receipt Date: 20131203
  Transmission Date: 20140711
  Serious: Yes (Death, Hospitalization, Disabling, Other)
  Sender: FDA-Public Use
  Company Number: US-009507513-1309USA001618

PATIENT
  Sex: Female
  Weight: 72.56 kg

DRUGS (3)
  1. JANUVIA [Suspect]
     Indication: TYPE 2 DIABETES MELLITUS
     Dosage: 100 MG, QD
     Route: 048
     Dates: start: 20100511, end: 20110714
  2. JANUVIA [Suspect]
     Dosage: 50 MG, QD
     Route: 048
     Dates: start: 20110715, end: 20121123
  3. GLIPIZIDE [Concomitant]
     Indication: TYPE 2 DIABETES MELLITUS

REACTIONS (23)
  - Pancreatic carcinoma metastatic [Unknown]
  - Hepatic cancer metastatic [Fatal]
  - Upper gastrointestinal haemorrhage [Unknown]
  - Mallory-Weiss syndrome [Unknown]
  - Anaemia [Unknown]
  - Hypovolaemia [Recovered/Resolved]
  - Hypophosphataemia [Unknown]
  - Hypomagnesaemia [Unknown]
  - Malignant mesenteric neoplasm [Unknown]
  - Pulmonary mass [Unknown]
  - Renal failure acute [Recovered/Resolved]
  - Vomiting [Recovered/Resolved]
  - Atrial tachycardia [Unknown]
  - Hepatic steatosis [Unknown]
  - Central venous catheterisation [Unknown]
  - Transient ischaemic attack [Unknown]
  - Pleural effusion [Unknown]
  - Mediastinal mass [Unknown]
  - Hepatic mass [Unknown]
  - Bronchitis [Unknown]
  - Renal failure acute [Unknown]
  - Wrong technique in drug usage process [Unknown]
  - Iodine allergy [Unknown]
